FAERS Safety Report 6199040-4 (Version None)
Quarter: 2009Q2

REPORT INFORMATION
  Report Type: 
  Country: None (occurrence: None)
  Receive Date: 20090520
  Receipt Date: 20090520
  Transmission Date: 20091009
  Serious: Yes (Other)
  Sender: FDA-Public Use
  Company Number: None

PATIENT
  Age: 60 Year
  Sex: Male
  Weight: 63.5036 kg

DRUGS (1)
  1. VENTOLIN DS [Suspect]

REACTIONS (3)
  - APPLICATION SITE BURN [None]
  - BURN INFECTION [None]
  - INCORRECT ROUTE OF DRUG ADMINISTRATION [None]
